FAERS Safety Report 9013732 (Version 1)
Quarter: 2013Q1

REPORT INFORMATION
  Report Type: Spontaneous
  Country: US (occurrence: US)
  Receive Date: 20130115
  Receipt Date: 20130115
  Transmission Date: 20140127
  Serious: Yes (Other)
  Sender: FDA-Public Use
  Company Number: US-009507513-0909USA03416

PATIENT
  Age: 6 Year
  Sex: Male
  Weight: 17.69 kg

DRUGS (1)
  1. SINGULAIR [Suspect]
     Indication: CHRONIC SINUSITIS
     Dosage: 4 MG, UNK
     Route: 048
     Dates: start: 20090216, end: 20090310

REACTIONS (5)
  - Crying [Not Recovered/Not Resolved]
  - Personality change [Not Recovered/Not Resolved]
  - Anger [Not Recovered/Not Resolved]
  - Aggression [Not Recovered/Not Resolved]
  - Irritability [Not Recovered/Not Resolved]
